FAERS Safety Report 9771314 (Version 3)
Quarter: 2014Q1

REPORT INFORMATION
  Report Type: Spontaneous
  Country: JP (occurrence: JP)
  Receive Date: 20131218
  Receipt Date: 20140304
  Transmission Date: 20141002
  Serious: Yes (Hospitalization)
  Sender: FDA-Public Use
  Company Number: PHHY2013JP146031

PATIENT
  Sex: Female
  Weight: 16 kg

DRUGS (16)
  1. SANDIMMUN [Suspect]
     Indication: KAWASAKI^S DISEASE
     Dosage: 48 MG, DAILY
     Route: 042
     Dates: start: 20121122, end: 20121123
  2. SANDIMMUN [Suspect]
     Dosage: 33.6 MG, DAILY
     Route: 042
     Dates: start: 20121124, end: 20121126
  3. SANDIMMUN [Suspect]
     Dosage: 28.8 MG, DAILY
     Route: 042
     Dates: start: 20121127, end: 20121130
  4. NEORAL [Suspect]
     Indication: KAWASAKI^S DISEASE
     Dosage: 4 MG/KG, DAILY
     Route: 048
  5. NEORAL [Suspect]
     Dosage: 5.3 MG/KG, DAILY
     Route: 048
  6. NEORAL [Suspect]
     Dosage: 4 MG/KG, DAILY
     Route: 048
  7. PREDONINE [Suspect]
     Indication: KAWASAKI^S DISEASE
     Dosage: 30 MG/KG, UNK
     Route: 042
  8. PREDONINE [Suspect]
     Dosage: 2 MG/KG, UNK
     Route: 042
  9. PREDONINE [Suspect]
     Dosage: 30 MG, DAILY
     Route: 042
     Dates: start: 20121117, end: 20121121
  10. PREDONINE [Suspect]
     Indication: KAWASAKI^S DISEASE
     Dosage: 30 MG, DAILY
     Route: 048
     Dates: start: 20121122, end: 20121122
  11. PREDONINE [Suspect]
     Dosage: 15 MG, DAILY
     Route: 048
     Dates: start: 20121123, end: 20121125
  12. PREDONINE [Suspect]
     Dosage: 6 MG, DAILY
     Route: 048
     Dates: start: 20121126, end: 20121129
  13. ASPIRIN [Concomitant]
     Indication: KAWASAKI^S DISEASE
     Dosage: 30 MG/KG, UNK
     Route: 048
  14. ASPIRIN [Concomitant]
     Dosage: 500 MG, UNK
     Route: 048
  15. ASPIRIN [Concomitant]
     Dosage: 80 MG, UNK
     Route: 048
     Dates: end: 20130210
  16. GAMMA-GLOBULIN [Concomitant]
     Indication: KAWASAKI^S DISEASE
     Dosage: 30 MG, UNK
     Route: 042
     Dates: start: 20121117, end: 20121121

REACTIONS (5)
  - Leukaemoid reaction [Recovered/Resolved]
  - White blood cell count increased [Recovered/Resolved]
  - Neutrophil count increased [Unknown]
  - Lymphocyte count increased [Unknown]
  - Platelet count increased [Unknown]
